FAERS Safety Report 9304968 (Version 1)
Quarter: 2013Q2

REPORT INFORMATION
  Report Type: Spontaneous
  Country: US (occurrence: None)
  Receive Date: 20130521
  Receipt Date: 20130521
  Transmission Date: 20140414
  Serious: Yes (Other)
  Sender: FDA-Public Use
  Company Number: USW201305-000049

PATIENT
  Age: 64 Year
  Sex: Male
  Weight: 91.5 kg

DRUGS (1)
  1. APOKYN (APOMORPHINE HYDROCHLORIDE) (APOMORPHINE HYDROCHLORIDE) [Suspect]
     Indication: PARKINSON^S DISEASE
     Dosage: 0.2 ML, PRN UPTO 5 DOSES DAILY (RIGHT UPPER QUADRANT OF ABDOMEN)
     Route: 058
     Dates: start: 20130506

REACTIONS (5)
  - Nausea [None]
  - Retching [None]
  - Dizziness [None]
  - Rash erythematous [None]
  - Blister [None]
